FAERS Safety Report 12299614 (Version 2)
Quarter: 2016Q2

REPORT INFORMATION
  Report Type: Spontaneous
  Country: US (occurrence: US)
  Receive Date: 20160425
  Receipt Date: 20160516
  Transmission Date: 20160815
  Serious: No
  Sender: FDA-Public Use
  Company Number: US-PFIZER INC-2016226547

PATIENT
  Sex: Female

DRUGS (7)
  1. NUTRILYTE [Suspect]
     Active Substance: CALCIUM ACETATE\MAGNESIUM ACETATE\POTASSIUM ACETATE\POTASSIUM CHLORIDE\SODIUM ACETATE\SODIUM GLUCONATE
     Dosage: UNK
  2. BIOREIN [Suspect]
     Active Substance: UBIDECARENONE
     Dosage: UNK
  3. CYMBALTA [Suspect]
     Active Substance: DULOXETINE HYDROCHLORIDE
     Dosage: UNK
  4. LYRICA [Suspect]
     Active Substance: PREGABALIN
     Dosage: UNK
  5. VERSED [Suspect]
     Active Substance: MIDAZOLAM HYDROCHLORIDE
     Dosage: UNK
  6. ELAVIL [Suspect]
     Active Substance: AMITRIPTYLINE HYDROCHLORIDE
     Dosage: UNK
  7. DEMEROL [Suspect]
     Active Substance: MEPERIDINE HYDROCHLORIDE
     Dosage: UNK

REACTIONS (1)
  - Drug hypersensitivity [Unknown]
